FAERS Safety Report 12269281 (Version 1)
Quarter: 2016Q2

REPORT INFORMATION
  Report Type: Spontaneous
  Country: US (occurrence: US)
  Receive Date: 20160414
  Receipt Date: 20160414
  Transmission Date: 20160815
  Serious: No
  Sender: FDA-Public Use
  Company Number: US-MDT-ADR-2015-02299

PATIENT
  Age: 55 Year
  Sex: Female

DRUGS (4)
  1. OMEPRAZOLE. [Suspect]
     Active Substance: OMEPRAZOLE
  2. NORTRIPTYLINE [Suspect]
     Active Substance: NORTRIPTYLINE
  3. ATENOLOL. [Suspect]
     Active Substance: ATENOLOL
  4. BACLOFEN. [Suspect]
     Active Substance: BACLOFEN
     Dosage: 150 MCG/DAY
     Route: 037

REACTIONS (2)
  - Pain [Unknown]
  - Fall [Unknown]
